FAERS Safety Report 24257405 (Version 1)
Quarter: 2024Q3

REPORT INFORMATION
  Report Type: Spontaneous
  Country: US (occurrence: US)
  Receive Date: 20240828
  Receipt Date: 20240828
  Transmission Date: 20241017
  Serious: Yes (Other)
  Sender: AMGEN
  Company Number: US-AMGEN-USASP2024164835

PATIENT

DRUGS (3)
  1. TALIMOGENE LAHERPAREPVEC [Suspect]
     Active Substance: TALIMOGENE LAHERPAREPVEC
     Indication: Malignant peritoneal neoplasm
     Dosage: 4000000 PLAQUE-FORMING UNITS, Q2WK (4X10^6)
     Route: 065
  2. TALIMOGENE LAHERPAREPVEC [Suspect]
     Active Substance: TALIMOGENE LAHERPAREPVEC
     Indication: Off label use
     Dosage: 4000000 PLAQUE-FORMING UNITS, Q2WK (4X10^7)
     Route: 065
  3. TALIMOGENE LAHERPAREPVEC [Suspect]
     Active Substance: TALIMOGENE LAHERPAREPVEC
     Dosage: 4000000 PLAQUE-FORMING UNITS, Q2WK (4X10^8)
     Route: 065

REACTIONS (2)
  - Neutrophil count decreased [Unknown]
  - Off label use [Unknown]
